FAERS Safety Report 18321168 (Version 2)
Quarter: 2020Q4

REPORT INFORMATION
  Report Type: Spontaneous
  Country: US (occurrence: US)
  Receive Date: 20200928
  Receipt Date: 20201026
  Transmission Date: 20210113
  Serious: No
  Sender: FDA-Public Use
  Company Number: US-BAYER-2020-196510

PATIENT
  Sex: Male

DRUGS (1)
  1. JIVI [Suspect]
     Active Substance: DAMOCTOCOG ALFA PEGOL
     Indication: FACTOR VIII DEFICIENCY
     Dosage: UNK
     Route: 042
     Dates: start: 2020

REACTIONS (1)
  - Chest discomfort [None]

NARRATIVE: CASE EVENT DATE: 2020
